FAERS Safety Report 9126291 (Version 1)
Quarter: 2013Q1

REPORT INFORMATION
  Report Type: Spontaneous
  Country: US (occurrence: US)
  Receive Date: 20130228
  Receipt Date: 20130228
  Transmission Date: 20140127
  Serious: No
  Sender: FDA-Public Use
  Company Number: US-BIOGENIDEC-2013BI017230

PATIENT
  Age: 14 Year
  Sex: Female

DRUGS (3)
  1. TYSABRI [Suspect]
     Indication: MULTIPLE SCLEROSIS
     Route: 042
     Dates: start: 20120510
  2. AVONEX [Concomitant]
     Indication: MULTIPLE SCLEROSIS
     Route: 030
     Dates: start: 20110201
  3. AVONEX [Concomitant]
     Indication: MULTIPLE SCLEROSIS
     Route: 030
     Dates: start: 20120216

REACTIONS (5)
  - Ear infection [Recovered/Resolved]
  - Off label use [Not Recovered/Not Resolved]
  - Chest pain [Recovered/Resolved]
  - Rash [Recovered/Resolved with Sequelae]
  - Pharyngitis streptococcal [Recovered/Resolved]
